FAERS Safety Report 9450278 (Version 1)
Quarter: 2013Q3

REPORT INFORMATION
  Report Type: Report from Study
  Country: US (occurrence: US)
  Receive Date: 20130809
  Receipt Date: 20130809
  Transmission Date: 20140515
  Serious: Yes (Hospitalization, Other)
  Sender: FDA-Public Use
  Company Number: US-ABBOTT-13P-163-1127861-00

PATIENT
  Age: 65 Year
  Sex: Female

DRUGS (1)
  1. HUMIRA [Suspect]
     Indication: COLITIS ULCERATIVE
     Dosage: MEDICATION IS ON HOLD; WILL RESUME PENDING MD ADVICE
     Route: 058
     Dates: start: 20130510, end: 20130621

REACTIONS (5)
  - Carotid artery occlusion [Unknown]
  - Transient ischaemic attack [Unknown]
  - Limb discomfort [Unknown]
  - Urinary tract infection [Recovered/Resolved]
  - Fungal infection [Not Recovered/Not Resolved]
